FAERS Safety Report 23301040 (Version 1)
Quarter: 2023Q4

REPORT INFORMATION
  Report Type: Report from Study
  Country: IT (occurrence: IT)
  Receive Date: 20231215
  Receipt Date: 20231215
  Transmission Date: 20240110
  Serious: Yes (Other)
  Sender: FDA-Public Use
  Company Number: None

PATIENT
  Age: 17 Year
  Sex: Male
  Weight: 67 kg

DRUGS (4)
  1. METHOTREXATE SODIUM [Suspect]
     Active Substance: METHOTREXATE SODIUM
     Indication: Precursor T-lymphoblastic lymphoma/leukaemia
     Dosage: 80 MG, WEEKLY
     Route: 048
     Dates: start: 20220914
  2. METHOTREXATE SODIUM [Suspect]
     Active Substance: METHOTREXATE SODIUM
     Dosage: 100 MG, WEEKLY
     Route: 048
     Dates: start: 20230914
  3. PURINETHOL [Suspect]
     Active Substance: MERCAPTOPURINE
     Indication: Precursor T-lymphoblastic lymphoma/leukaemia
     Dosage: 100 MG, DAILY
     Route: 048
     Dates: start: 20220914
  4. PURINETHOL [Suspect]
     Active Substance: MERCAPTOPURINE
     Dosage: 125 MG, DAILY
     Route: 048
     Dates: start: 20230914

REACTIONS (1)
  - Hyperbilirubinaemia [Not Recovered/Not Resolved]

NARRATIVE: CASE EVENT DATE: 20231116
